FAERS Safety Report 7573903-7 (Version None)
Quarter: 2011Q3

REPORT INFORMATION
  Report Type: 
  Country: None (occurrence: None)
  Receive Date: 20110627
  Receipt Date: 20110616
  Transmission Date: 20111222
  Serious: Yes (Hospitalization)
  Sender: FDA-Public Use
  Company Number: B0723201A

PATIENT
  Sex: Male
  Weight: 63 kg

DRUGS (1)
  1. LAMIVUDINE(PEPFAR) [Suspect]
     Dosage: 100MG PER DAY
     Route: 048
     Dates: start: 20100505, end: 20110524

REACTIONS (1)
  - URETERIC OBSTRUCTION [None]
